FAERS Safety Report 6793160-9 (Version None)
Quarter: 2010Q2

REPORT INFORMATION
  Report Type: 
  Country: None (occurrence: None)
  Receive Date: 20100624
  Receipt Date: 20090709
  Transmission Date: 20101027
  Serious: Yes (Death, Hospitalization, Other)
  Sender: FDA-Public Use
  Company Number: US-MYLANLABS-2009S1010721

PATIENT
  Age: 49 Year
  Sex: Male
  Weight: 131.54 kg

DRUGS (24)
  1. CLOZAPINE [Suspect]
     Indication: SCHIZOAFFECTIVE DISORDER
  2. FUROSEMIDE [Concomitant]
  3. LEVOTHYROXINE [Concomitant]
  4. POTASSIUM [Concomitant]
  5. COGETIN [Concomitant]
  6. ASPIRIN [Concomitant]
  7. MULTI-VITAMIN [Concomitant]
  8. HALDOL [Concomitant]
  9. METOCLOPRAMIDE [Concomitant]
  10. ACTOS [Concomitant]
  11. LEXAPRO [Concomitant]
  12. GEODON [Concomitant]
  13. DOCUSATE [Concomitant]
  14. EFFEXOR [Concomitant]
  15. PHENYTOIN [Concomitant]
  16. NEXIUM [Concomitant]
  17. METFORMIN HCL [Concomitant]
  18. AVAPRO [Concomitant]
  19. TOPAMAX [Concomitant]
  20. LORATADINE [Concomitant]
  21. SIMVASTATIN [Concomitant]
  22. METAMUCIL-2 [Concomitant]
  23. DICLOFENAC [Concomitant]
  24. LEVEMIR [Concomitant]

REACTIONS (2)
  - GASTROINTESTINAL INFECTION [None]
  - STAPHYLOCOCCAL INFECTION [None]
